FAERS Safety Report 7639593-X (Version None)
Quarter: 2011Q3

REPORT INFORMATION
  Report Type: 
  Country: None (occurrence: None)
  Receive Date: 20110721
  Receipt Date: 20110706
  Transmission Date: 20111222
  Serious: Yes (Hospitalization)
  Sender: FDA-Public Use
  Company Number: IDA-00560

PATIENT
  Age: 77 Year
  Sex: Male

DRUGS (6)
  1. PROPRANOLOL [Suspect]
     Indication: PARKINSON'S DISEASE
     Route: 048
     Dates: start: 20010101
  2. SEROQUEL [Suspect]
     Indication: CONFUSIONAL STATE
     Dosage: 200 MG
     Route: 048
     Dates: start: 20110401
  3. AVODART [Concomitant]
  4. PROLOPA (BENSERAZIDE, LEVODOPA) [Concomitant]
  5. MANTADAN (AMANTADINE HYDROCHLORIDE) [Concomitant]
  6. RETEMIC (OXYBUTYNIN HYDROCHLORIDE) [Concomitant]

REACTIONS (3)
  - URINARY TRACT INFECTION [None]
  - OFF LABEL USE [None]
  - SEPSIS [None]
